FAERS Safety Report 23340275 (Version 2)
Quarter: 2024Q1

REPORT INFORMATION
  Report Type: Report from Study
  Country: US (occurrence: US)
  Receive Date: 20231227
  Receipt Date: 20240209
  Transmission Date: 20240409
  Serious: Yes (Other)
  Sender: FDA-Public Use
  Company Number: US-HORIZON THERAPEUTICS-HZN-2023-011083

PATIENT

DRUGS (3)
  1. TEPEZZA [Suspect]
     Active Substance: TEPROTUMUMAB-TRBW
     Indication: Endocrine ophthalmopathy
     Dosage: FIRST INFUSION, EVERY 3 WEEKS
     Route: 042
     Dates: start: 20230928
  2. TEPEZZA [Suspect]
     Active Substance: TEPROTUMUMAB-TRBW
     Dosage: SECOND INFUSION, EVERY 3 WEEKS
     Route: 042
     Dates: start: 2023
  3. TEPEZZA [Suspect]
     Active Substance: TEPROTUMUMAB-TRBW
     Dosage: SIXTH INFUSION, UNK, EVERY 3 WEEKS
     Route: 042
     Dates: start: 20240116

REACTIONS (10)
  - Seizure [Unknown]
  - Balance disorder [Unknown]
  - Weight decreased [Unknown]
  - Drug ineffective [Unknown]
  - Hypoacusis [Unknown]
  - Periorbital swelling [Unknown]
  - Eye irritation [Unknown]
  - Ocular discomfort [Unknown]
  - Eye swelling [Unknown]
  - Swelling [Unknown]

NARRATIVE: CASE EVENT DATE: 20230101
